FAERS Safety Report 16630686 (Version 1)
Quarter: 2019Q3

REPORT INFORMATION
  Report Type: Spontaneous
  Country: ES (occurrence: ES)
  Receive Date: 20190725
  Receipt Date: 20190725
  Transmission Date: 20191004
  Serious: Yes (Hospitalization)
  Sender: FDA-Public Use
  Company Number: ES-ACCORD-148636

PATIENT
  Age: 55 Year
  Sex: Female

DRUGS (3)
  1. TACROLIMUS. [Suspect]
     Active Substance: TACROLIMUS
     Indication: SOLID ORGAN TRANSPLANT
     Route: 048
     Dates: start: 20180727, end: 20190322
  2. MYCOPHENOLIC ACID. [Interacting]
     Active Substance: MYCOPHENOLIC ACID
     Indication: SOLID ORGAN TRANSPLANT
     Route: 048
     Dates: start: 20180727, end: 20190322
  3. PREDNISONE/PREDNISONE ACETATE [Interacting]
     Active Substance: PREDNISONE ACETATE
     Indication: SOLID ORGAN TRANSPLANT
     Route: 048
     Dates: start: 20180727, end: 20190322

REACTIONS (2)
  - Drug interaction [Unknown]
  - Genitourinary tract infection [Recovered/Resolved]

NARRATIVE: CASE EVENT DATE: 20181101
